FAERS Safety Report 4756864-5 (Version None)
Quarter: 2005Q3

REPORT INFORMATION
  Report Type: 
  Country: None (occurrence: None)
  Receive Date: 20050830
  Receipt Date: 20050420
  Transmission Date: 20060218
  Serious: No
  Sender: FDA-Public Use
  Company Number: US-GLAXOSMITHKLINE-A0555256A

PATIENT
  Age: 68 Year
  Sex: Male
  Weight: 100 kg

DRUGS (3)
  1. AVODART [Suspect]
     Dosage: .5MG PER DAY
     Route: 048
     Dates: start: 20040101
  2. ECOTRIN [Concomitant]
     Dosage: 325MG PER DAY
     Route: 048
  3. SINGULAIR [Concomitant]
     Indication: ASTHMA
     Dosage: 10MG PER DAY
     Route: 048

REACTIONS (1)
  - BLOOD CHOLESTEROL INCREASED [None]
